FAERS Safety Report 13937284 (Version 1)
Quarter: 2017Q3

REPORT INFORMATION
  Report Type: Spontaneous
  Country: FR (occurrence: FR)
  Receive Date: 20170905
  Receipt Date: 20170905
  Transmission Date: 20171127
  Serious: Yes (Death)
  Sender: FDA-Public Use
  Company Number: FR-PFIZER INC-2017376885

PATIENT
  Age: 64 Year
  Sex: Male

DRUGS (4)
  1. DOCETAXEL. [Suspect]
     Active Substance: DOCETAXEL
     Indication: SQUAMOUS CELL CARCINOMA OF THE TONGUE
     Dosage: 121 MG, SINGLE
     Route: 042
     Dates: start: 20160126, end: 20160126
  2. CISPLATINE [Suspect]
     Active Substance: CISPLATIN
     Indication: SQUAMOUS CELL CARCINOMA OF THE TONGUE
     Dosage: 121 MG, SINGLE
     Route: 042
     Dates: start: 20160126, end: 20160126
  3. FLUOROURACIL. [Suspect]
     Active Substance: FLUOROURACIL
     Indication: SQUAMOUS CELL CARCINOMA OF THE TONGUE
     Dosage: 1215 MG, 1X/DAY
     Route: 042
     Dates: start: 20160126, end: 20160130
  4. NEULASTA [Concomitant]
     Active Substance: PEGFILGRASTIM
     Dosage: UNK
     Dates: start: 20160201

REACTIONS (1)
  - Neutropenic colitis [Fatal]

NARRATIVE: CASE EVENT DATE: 20160201
